FAERS Safety Report 20472200 (Version 1)
Quarter: 2022Q1

REPORT INFORMATION
  Report Type: Spontaneous
  Country: CN (occurrence: CN)
  Receive Date: 20220214
  Receipt Date: 20220214
  Transmission Date: 20220423
  Serious: Yes (Other)
  Sender: FDA-Public Use
  Company Number: CN-SUN PHARMACEUTICAL INDUSTRIES LTD-2022R1-326135

PATIENT
  Age: 30 Year
  Sex: Female

DRUGS (3)
  1. ASPIRIN [Suspect]
     Active Substance: ASPIRIN
     Indication: Raynaud^s phenomenon
     Dosage: 100 MILLIGRAM, DAILY
     Route: 065
  2. METHYLPREDNISOLONE [Suspect]
     Active Substance: METHYLPREDNISOLONE
     Indication: Raynaud^s phenomenon
     Dosage: 4 MILLIGRAM, DAILY
     Route: 065
  3. URSODIOL [Suspect]
     Active Substance: URSODIOL
     Indication: Pruritus
     Dosage: 1 GRAM PER DAY
     Route: 065

REACTIONS (3)
  - Exposure during pregnancy [Unknown]
  - Cholestasis [Unknown]
  - Live birth [Unknown]
